FAERS Safety Report 5635518-7 (Version None)
Quarter: 2008Q1

REPORT INFORMATION
  Report Type: 
  Country: None (occurrence: None)
  Receive Date: 20080222
  Receipt Date: 20080214
  Transmission Date: 20080703
  Serious: Yes (Hospitalization)
  Sender: FDA-Public Use
  Company Number: GB-PFIZER INC-2008014650

PATIENT
  Age: 40 Year
  Sex: Female
  Weight: 45 kg

DRUGS (4)
  1. CHANTIX [Suspect]
     Indication: SMOKING CESSATION THERAPY
     Route: 048
     Dates: start: 20080111, end: 20080114
  2. CITALOPRAM HYDROBROMIDE [Concomitant]
     Route: 048
  3. OLANZAPINE [Concomitant]
     Route: 048
  4. ALBUTEROL [Concomitant]
     Route: 048

REACTIONS (3)
  - EUPHORIC MOOD [None]
  - FEELING JITTERY [None]
  - MALAISE [None]
